FAERS Safety Report 5699226-9 (Version None)
Quarter: 2008Q2

REPORT INFORMATION
  Report Type: 
  Country: None (occurrence: None)
  Receive Date: 20080408
  Receipt Date: 20080408
  Transmission Date: 20081010
  Serious: Yes (Other)
  Sender: FDA-Public Use
  Company Number: None

PATIENT
  Age: 22 Year
  Sex: Male

DRUGS (3)
  1. CYCLOPHOSPHAMIDE [Suspect]
     Dosage: 480 MG Q12 HOURS
     Dates: start: 20070824, end: 20070826
  2. FLUCONAZOLE [Suspect]
     Dosage: 100 MG PO DAILY
     Route: 048
     Dates: start: 20070822, end: 20070826
  3. ALLOPURINOL [Suspect]
     Dosage: 300 MG DAILY
     Dates: start: 20070824, end: 20070826

REACTIONS (3)
  - BLOOD ALKALINE PHOSPHATASE INCREASED [None]
  - LIVER INJURY [None]
  - TRANSAMINASES INCREASED [None]
